FAERS Safety Report 5469134-7 (Version None)
Quarter: 2007Q3

REPORT INFORMATION
  Report Type: 
  Country: None (occurrence: None)
  Receive Date: 20070927
  Receipt Date: 20070920
  Transmission Date: 20080115
  Serious: Yes (Other)
  Sender: FDA-Public Use
  Company Number: PHBS2007JP15746

PATIENT
  Sex: Male

DRUGS (2)
  1. DIOVAN [Suspect]
     Indication: HYPERTENSION
     Dosage: 80 MG, QD
     Route: 048
     Dates: start: 20070226, end: 20070305
  2. NORVASC [Concomitant]
     Indication: HYPERTENSION
     Dosage: 5 MG, UNK
     Route: 048

REACTIONS (4)
  - BETA-N-ACETYL-D-GLUCOSAMINIDASE INCREASED [None]
  - HAEMATURIA [None]
  - OCCULT BLOOD POSITIVE [None]
  - PROTEIN URINE PRESENT [None]
